FAERS Safety Report 7645135-5 (Version None)
Quarter: 2011Q3

REPORT INFORMATION
  Report Type: 
  Country: None (occurrence: None)
  Receive Date: 20110729
  Receipt Date: 20110719
  Transmission Date: 20111222
  Serious: Yes (Other)
  Sender: FDA-Public Use
  Company Number: CA-JNJFOC-20110708197

PATIENT
  Age: 39 Year
  Sex: Female

DRUGS (2)
  1. INFLIXIMAB, RECOMBINANT [Suspect]
     Indication: TAKAYASU'S ARTERITIS
     Route: 042
  2. METHOTREXATE [Concomitant]
     Indication: TAKAYASU'S ARTERITIS

REACTIONS (1)
  - TAKAYASU'S ARTERITIS [None]
